FAERS Safety Report 5701220-6 (Version None)
Quarter: 2008Q2

REPORT INFORMATION
  Report Type: 
  Country: None (occurrence: None)
  Receive Date: 20080410
  Receipt Date: 20080313
  Transmission Date: 20081010
  Serious: No
  Sender: FDA-Public Use
  Company Number: US-BOEHRINGER INGELHEIM GMBH, GERMANY-2008-BP-00055BP

PATIENT
  Sex: Female

DRUGS (11)
  1. COMBIVENT [Suspect]
     Indication: CHRONIC OBSTRUCTIVE PULMONARY DISEASE
     Route: 055
     Dates: start: 20070101
  2. COMBIVENT [Suspect]
     Indication: EMPHYSEMA
  3. NEXIUM [Concomitant]
  4. PLAVIX [Concomitant]
  5. FELODIPINE ER [Concomitant]
  6. GLIPIZIDE [Concomitant]
  7. METOPROLOL SUCCINATE [Concomitant]
  8. LOVASTATIN [Concomitant]
  9. TRIMETHOPRIM [Concomitant]
  10. DIAZEPAM [Concomitant]
  11. LUNESTA [Concomitant]

REACTIONS (2)
  - COUGH [None]
  - DYSPNOEA [None]
